FAERS Safety Report 5362675-2 (Version None)
Quarter: 2007Q2

REPORT INFORMATION
  Report Type: 
  Country: None (occurrence: None)
  Receive Date: 20070614
  Receipt Date: 20070604
  Transmission Date: 20071010
  Serious: Yes (Hospitalization, Other)
  Sender: FDA-Public Use
  Company Number: CHNY2007JP01716

PATIENT
  Age: 62 Year
  Sex: Male

DRUGS (2)
  1. NICOTINE [Suspect]
     Indication: SMOKING CESSATION THERAPY
     Dosage: 21 MG, QD, TRANSDERMAL
     Route: 062
     Dates: start: 20070319, end: 20070324
  2. LANSOPRAZOLE [Concomitant]

REACTIONS (11)
  - ABDOMINAL PAIN [None]
  - APATHY [None]
  - BLOOD PRESSURE INCREASED [None]
  - CHEST PAIN [None]
  - DEPRESSION [None]
  - DISCOMFORT [None]
  - HEADACHE [None]
  - ROAD TRAFFIC ACCIDENT [None]
  - STOMACH DISCOMFORT [None]
  - STRESS [None]
  - VAGINAL INFECTION [None]
